FAERS Safety Report 8500671 (Version 5)
Quarter: 2013Q1

REPORT INFORMATION
  Report Type: Report from Study
  Country: JP (occurrence: JP)
  Receive Date: 20120409
  Receipt Date: 20130102
  Transmission Date: 20140127
  Serious: Yes (Other)
  Sender: FDA-Public Use
  Company Number: JP-VERTEX PHARMACEUTICALS INC.-AE-2012-004795

PATIENT
  Age: 50 Year
  Sex: Male

DRUGS (11)
  1. VX-950 (TELAPREVIR) [Suspect]
     Indication: CHRONIC HEPATITIS C
     Dosage: 2250 MG, QD
     Route: 048
     Dates: start: 20120214, end: 20120508
  2. RIBAVIRIN [Suspect]
     Indication: CHRONIC HEPATITIS C
     Dosage: 1000 MG, QD
     Route: 048
     Dates: start: 20120214, end: 20120410
  3. RIBAVIRIN [Suspect]
     Dosage: 800 MG, QD
     Route: 048
     Dates: start: 20120411, end: 20120501
  4. RIBAVIRIN [Suspect]
     Dosage: 600 MG, QD
     Route: 048
     Dates: start: 20120502, end: 20120731
  5. PEGINTRON                          /01543001/ [Suspect]
     Indication: CHRONIC HEPATITIS C
     Dosage: 1.5 ?G/KG, QW
     Route: 058
     Dates: start: 20120214, end: 20120326
  6. PEGINTRON                          /01543001/ [Suspect]
     Dosage: 1.175 ?G/KG, QW
     Route: 058
     Dates: start: 20120327
  7. PEGINTRON                          /01543001/ [Suspect]
     Dosage: 1.25 ?G/KG, QW
     Route: 058
     Dates: end: 20120724
  8. DERMOVATE [Concomitant]
     Dosage: UNK, PRN
     Route: 062
     Dates: end: 20120605
  9. ALESION [Concomitant]
     Dosage: 20 MG, QD
     Route: 048
     Dates: end: 20120731
  10. ZYLORIC [Concomitant]
     Dosage: 200 MG, QD
     Route: 048
     Dates: end: 20120605
  11. HIRUDOID                           /00723701/ [Concomitant]
     Dosage: UNK, PRN
     Route: 062

REACTIONS (1)
  - Neutrophil count decreased [Recovered/Resolved]
